FAERS Safety Report 16114017 (Version 1)
Quarter: 2019Q1

REPORT INFORMATION
  Report Type: Spontaneous
  Country: FR (occurrence: FR)
  Receive Date: 20190325
  Receipt Date: 20190325
  Transmission Date: 20190418
  Serious: Yes (Death, Other)
  Sender: FDA-Public Use
  Company Number: FR-PFIZER INC-2019123605

PATIENT
  Age: 71 Year
  Sex: Female

DRUGS (1)
  1. CARBOPLATINE HOSPIRA [Suspect]
     Active Substance: CARBOPLATIN
     Indication: COLORECTAL ADENOCARCINOMA
     Dosage: 1 DF, UNK
     Route: 041
     Dates: start: 20190130

REACTIONS (2)
  - Anaphylactoid shock [Fatal]
  - Cardio-respiratory arrest [Fatal]

NARRATIVE: CASE EVENT DATE: 20190130
